FAERS Safety Report 12205130 (Version 2)
Quarter: 2016Q2

REPORT INFORMATION
  Report Type: Spontaneous
  Country: BR (occurrence: BR)
  Receive Date: 20160323
  Receipt Date: 20160505
  Transmission Date: 20160815
  Serious: Yes (Other)
  Sender: FDA-Public Use
  Company Number: BR-JNJFOC-20160319662

PATIENT
  Age: 51 Year
  Sex: Female
  Weight: 74 kg

DRUGS (4)
  1. METHOTREXATE [Concomitant]
     Active Substance: METHOTREXATE
     Route: 065
  2. SIMPONI [Suspect]
     Active Substance: GOLIMUMAB
     Indication: RHEUMATOID ARTHRITIS
     Route: 058
     Dates: start: 20140912
  3. FOLIC ACID. [Concomitant]
     Active Substance: FOLIC ACID
     Route: 065
  4. PREDNISONE. [Concomitant]
     Active Substance: PREDNISONE
     Route: 065

REACTIONS (5)
  - Device malfunction [Unknown]
  - Rheumatoid factor increased [Unknown]
  - Arthropod bite [Unknown]
  - Inappropriate schedule of drug administration [Unknown]
  - Tonsillitis [Unknown]

NARRATIVE: CASE EVENT DATE: 201510
